FAERS Safety Report 14009522 (Version 1)
Quarter: 2017Q3

REPORT INFORMATION
  Report Type: Not Available
  Country: None (occurrence: US)
  Receive Date: 20170925
  Receipt Date: 20170925
  Transmission Date: 20171128
  Serious: No
  Sender: FDA-Public Use
  Company Number: US-AKORN-64148

PATIENT
  Sex: Male

DRUGS (1)
  1. KETOTIFEN FUMARATE- KETOTIFEN FUMARATE SOLUTION/DROPS [Suspect]
     Active Substance: KETOTIFEN FUMARATE

REACTIONS (1)
  - Drug ineffective [Unknown]
